FAERS Safety Report 13317172 (Version 1)
Quarter: 2017Q1

REPORT INFORMATION
  Report Type: Spontaneous
  Country: AU (occurrence: AU)
  Receive Date: 20170310
  Receipt Date: 20170310
  Transmission Date: 20170428
  Serious: Yes (Other)
  Sender: FDA-Public Use
  Company Number: AU-009507513-1703AUS002807

PATIENT
  Sex: Female

DRUGS (1)
  1. SINGULAIR [Suspect]
     Active Substance: MONTELUKAST SODIUM
     Dosage: 4 MG, QD
     Route: 048
     Dates: end: 20160805

REACTIONS (4)
  - Weight increased [Recovering/Resolving]
  - Nightmare [Recovering/Resolving]
  - Insomnia [Recovering/Resolving]
  - Mood swings [Recovering/Resolving]
